FAERS Safety Report 6602433-1 (Version None)
Quarter: 2010Q1

REPORT INFORMATION
  Report Type: 
  Country: None (occurrence: None)
  Receive Date: 20100225
  Receipt Date: 20100222
  Transmission Date: 20100710
  Serious: Yes (Other)
  Sender: FDA-Public Use
  Company Number: DE-ROXANE LABORATORIES, INC.-2010-RO-00189RO

PATIENT
  Age: 19 Year
  Sex: Female

DRUGS (11)
  1. AZATHIOPRINE [Suspect]
     Indication: AUTOIMMUNE HEPATITIS
     Dosage: 200 MG
  2. MYCOPHENOLATE MOFETIL [Suspect]
     Indication: AUTOIMMUNE HEPATITIS
  3. CYCLOPHOSPHAMIDE [Suspect]
     Indication: AUTOIMMUNE HEPATITIS
  4. PREDNISOLONE [Suspect]
     Indication: AUTOIMMUNE HEPATITIS
  5. PREDNISOLONE [Suspect]
     Dosage: 20 MG
  6. METHYLPREDNISOLONE 4MG TAB [Suspect]
     Indication: AUTOIMMUNE HEPATITIS
     Dosage: 20 MG
  7. INFLIXIMAB [Suspect]
     Indication: AUTOIMMUNE HEPATITIS
     Dates: start: 20021101, end: 20021201
  8. INFLIXIMAB [Suspect]
     Dates: start: 20040501
  9. INFLIXIMAB [Suspect]
     Dates: start: 20080101
  10. VITAMIN [Concomitant]
  11. ANTIBIOTIC [Concomitant]
     Indication: PSOAS ABSCESS

REACTIONS (11)
  - AUTOIMMUNE HEPATITIS [None]
  - CUSHING'S SYNDROME [None]
  - DRUG INEFFECTIVE [None]
  - DRUG TOXICITY [None]
  - FOOT FRACTURE [None]
  - HEPATIC CIRRHOSIS [None]
  - HERPES ZOSTER OPHTHALMIC [None]
  - OSTEOPOROSIS [None]
  - PSOAS ABSCESS [None]
  - TRANSAMINASES INCREASED [None]
  - WEIGHT INCREASED [None]
